FAERS Safety Report 6826772-4 (Version None)
Quarter: 2010Q3

REPORT INFORMATION
  Report Type: 
  Country: None (occurrence: None)
  Receive Date: 20100709
  Receipt Date: 20100625
  Transmission Date: 20110219
  Serious: Yes (Other)
  Sender: FDA-Public Use
  Company Number: US-ELI_LILLY_AND_COMPANY-US201006007332

PATIENT
  Sex: Male

DRUGS (16)
  1. FORTEO [Suspect]
     Dosage: 20 UG, DAILY (1/D)
  2. LANTUS [Concomitant]
  3. COREG [Concomitant]
  4. FLOMAX [Concomitant]
  5. DIGOXIN [Concomitant]
  6. LIPITOR [Concomitant]
  7. LISINOPRIL [Concomitant]
  8. CALCIUM CARBONATE [Concomitant]
  9. COLACE [Concomitant]
  10. ALLOPURINOL [Concomitant]
  11. MS CONTIN [Concomitant]
  12. LORTAB [Concomitant]
  13. ROXANOL [Concomitant]
  14. COMPAZINE [Concomitant]
  15. TYLENOL (CAPLET) [Concomitant]
  16. NOVOLOG [Concomitant]

REACTIONS (2)
  - NON-HODGKIN'S LYMPHOMA [None]
  - SURGERY [None]
